FAERS Safety Report 21349827 (Version 7)
Quarter: 2024Q1

REPORT INFORMATION
  Report Type: Spontaneous
  Country: US (occurrence: US)
  Receive Date: 20220919
  Receipt Date: 20240220
  Transmission Date: 20240409
  Serious: No
  Sender: FDA-Public Use
  Company Number: US-PFIZER INC-PV202200055925

PATIENT
  Age: 79 Year
  Sex: Female

DRUGS (7)
  1. BRAFTOVI [Suspect]
     Active Substance: ENCORAFENIB
     Indication: Papillary thyroid cancer
     Dosage: 450 MG
     Route: 048
  2. BRAFTOVI [Suspect]
     Active Substance: ENCORAFENIB
     Indication: Metastatic lymphoma
     Dosage: 300 MG, DAILY (START WITH 4 CAPS (300MG) PO DAILY INCREASE AS TOLERATED GLIPIZIDE)
     Route: 048
  3. BRAFTOVI [Suspect]
     Active Substance: ENCORAFENIB
     Indication: Lung neoplasm malignant
     Dosage: 450 MG, DAILY (TAKE 6 CAPSULES (450 MG) BY MOUTH DAILY, START WITH 4 CAPS (300MG) PO DAILY)
     Route: 048
  4. MEKTOVI [Suspect]
     Active Substance: BINIMETINIB
     Indication: Papillary thyroid cancer
     Dosage: 75 MG
  5. MEKTOVI [Suspect]
     Active Substance: BINIMETINIB
     Indication: Metastatic lymphoma
     Dosage: 45 MG, 2X/DAY (TAKE 45 MG BY MOUTH TWICE DAILY/ EVERY 12 (TWELVE) HOURS.)
     Route: 048
  6. MEKTOVI [Suspect]
     Active Substance: BINIMETINIB
     Indication: Lung neoplasm malignant
  7. GLUCOTROL [Concomitant]
     Active Substance: GLIPIZIDE
     Dosage: 10 MG, 2X/DAY (TAKE 1 TABLET BY MOUTH TWICE DAILY)
     Route: 048

REACTIONS (4)
  - Off label use [Unknown]
  - Illness [Unknown]
  - Influenza [Unknown]
  - Malaise [Unknown]
